FAERS Safety Report 8172405-7 (Version None)
Quarter: 2012Q1

REPORT INFORMATION
  Report Type: 
  Country: None (occurrence: None)
  Receive Date: 20120224
  Receipt Date: 20120224
  Transmission Date: 20120608
  Serious: No
  Sender: FDA-Public Use
  Company Number: None

PATIENT
  Sex: Female
  Weight: 17.3 kg

DRUGS (1)
  1. KLONOPIN [Suspect]
     Indication: EPILEPSY
     Dosage: 0.5 MG TABS Q H2 ORAL DISINTEGRATING DOSE (0.25MG 1/2 TAB)
     Route: 048
     Dates: start: 20091023, end: 20091029

REACTIONS (2)
  - PRODUCT SUBSTITUTION ISSUE [None]
  - CONVULSION [None]
